FAERS Safety Report 19151325 (Version 1)
Quarter: 2021Q2

REPORT INFORMATION
  Report Type: Spontaneous
  Country: CN (occurrence: CN)
  Receive Date: 20210419
  Receipt Date: 20210419
  Transmission Date: 20210717
  Serious: Yes (Other)
  Sender: FDA-Public Use
  Company Number: CN-JNJFOC-20210417997

PATIENT

DRUGS (3)
  1. IBUPROFEN. [Suspect]
     Active Substance: IBUPROFEN
     Indication: PATENT DUCTUS ARTERIOSUS
     Dosage: FIRST DOSE
     Route: 048
  2. IBUPROFEN. [Suspect]
     Active Substance: IBUPROFEN
     Dosage: AFTER 24HOURS AND 48 HOURS
     Route: 065
  3. PARACETAMOL [Suspect]
     Active Substance: ACETAMINOPHEN
     Indication: PATENT DUCTUS ARTERIOSUS
     Route: 048

REACTIONS (9)
  - Upper gastrointestinal haemorrhage [Unknown]
  - Urine output decreased [Unknown]
  - Necrotising colitis [Unknown]
  - Bronchopulmonary dysplasia [Unknown]
  - Intraventricular haemorrhage [Unknown]
  - Product use in unapproved indication [Unknown]
  - Off label use [Unknown]
  - Retinopathy of prematurity [Unknown]
  - Hyperbilirubinaemia [Unknown]
